FAERS Safety Report 18550132 (Version 1)
Quarter: 2020Q4

REPORT INFORMATION
  Report Type: Spontaneous
  Country: US (occurrence: US)
  Receive Date: 20201126
  Receipt Date: 20201126
  Transmission Date: 20210114
  Serious: Yes (Other)
  Sender: FDA-Public Use
  Company Number: US-GLAXOSMITHKLINE-US2020230519

PATIENT
  Age: 77 Year
  Sex: Male

DRUGS (1)
  1. THERAFLU MULTI SYMPTOM SEVERE COLD [Suspect]
     Active Substance: ACETAMINOPHEN\DEXTROMETHORPHAN HYDROBROMIDE\PHENYLEPHRINE HYDROCHLORIDE
     Indication: INFLUENZA
     Dosage: UNK

REACTIONS (4)
  - Hepatic pain [Unknown]
  - Ill-defined disorder [Unknown]
  - Renal pain [Unknown]
  - Nephrolithiasis [Unknown]
